FAERS Safety Report 16538400 (Version 3)
Quarter: 2020Q2

REPORT INFORMATION
  Report Type: Spontaneous
  Country: CO (occurrence: CO)
  Receive Date: 20190708
  Receipt Date: 20200606
  Transmission Date: 20200713
  Serious: Yes (Hospitalization)
  Sender: FDA-Public Use
  Company Number: CO-SUN PHARMACEUTICAL INDUSTRIES LTD-2019R1-212999

PATIENT
  Age: 29 Year
  Sex: Female

DRUGS (1)
  1. VALPROIC ACID. [Suspect]
     Active Substance: VALPROIC ACID
     Indication: MIGRAINE
     Dosage: 250 MILLIGRAM/12H
     Route: 065

REACTIONS (2)
  - Pancreatitis necrotising [Recovering/Resolving]
  - Pancreatitis haemorrhagic [Recovering/Resolving]
